FAERS Safety Report 21087171 (Version 1)
Quarter: 2022Q3

REPORT INFORMATION
  Report Type: Spontaneous
  Country: DE (occurrence: DE)
  Receive Date: 20220715
  Receipt Date: 20220715
  Transmission Date: 20221027
  Serious: Yes (Life-Threatening, Other)
  Sender: FDA-Public Use
  Company Number: DE-DCGMA-21194669

PATIENT
  Age: 83 Year
  Sex: Female
  Weight: 50 kg

DRUGS (1)
  1. DASATINIB [Suspect]
     Active Substance: DASATINIB
     Indication: Product used for unknown indication
     Route: 065

REACTIONS (4)
  - Pleural effusion [Unknown]
  - Cardiac septal hypertrophy [Unknown]
  - Pulmonary hypertension [Unknown]
  - Cardiac failure [Unknown]

NARRATIVE: CASE EVENT DATE: 20211105
